FAERS Safety Report 10403689 (Version 2)
Quarter: 2014Q4

REPORT INFORMATION
  Report Type: Spontaneous
  Country: US (occurrence: US)
  Receive Date: 20140822
  Receipt Date: 20141210
  Transmission Date: 20150528
  Serious: No
  Sender: FDA-Public Use
  Company Number: US-ASTRAZENECA-2014SE57335

PATIENT
  Age: 68 Year
  Sex: Female
  Weight: 81.6 kg

DRUGS (2)
  1. MORPHINE (NON AZ PRODUCT) [Suspect]
     Active Substance: MORPHINE
     Route: 065
  2. SYMBICORT [Suspect]
     Active Substance: BUDESONIDE\FORMOTEROL FUMARATE DIHYDRATE
     Indication: DYSPNOEA
     Dosage: 80/4.5 MCG,, 2 PUFFS TWO TIMES A DAY
     Route: 055
     Dates: start: 201210

REACTIONS (7)
  - Product use issue [Unknown]
  - Fatigue [Unknown]
  - Drug withdrawal syndrome [Unknown]
  - Feeling abnormal [Unknown]
  - Drug ineffective [Recovered/Resolved]
  - Psychomotor hyperactivity [Unknown]
  - Drug dose omission [Unknown]
